FAERS Safety Report 12659156 (Version 2)
Quarter: 2016Q4

REPORT INFORMATION
  Report Type: Spontaneous
  Country: IT (occurrence: IT)
  Receive Date: 20160817
  Receipt Date: 20161121
  Transmission Date: 20170207
  Serious: Yes (Hospitalization)
  Sender: FDA-Public Use
  Company Number: IT-TEVA-684136ACC

PATIENT
  Age: 77 Year
  Sex: Female

DRUGS (3)
  1. CARBOPLATINO TEVA - 10 MG/ML - TEVA PHARMA B.V [Suspect]
     Active Substance: CARBOPLATIN
     Indication: MESOTHELIOMA
     Dosage: 300 MG TOTAL
     Route: 042
     Dates: start: 20160729, end: 20160729
  2. ONDANSETRONE HIKMA - 8 MG/4 ML SOLUZIONE INIETTABILE [Concomitant]
     Active Substance: ONDANSETRON
     Indication: PRODUCT USED FOR UNKNOWN INDICATION
  3. ANTRA - ASTRAZENECA S.P.A. [Concomitant]
     Active Substance: OMEPRAZOLE
     Indication: PRODUCT USED FOR UNKNOWN INDICATION

REACTIONS (3)
  - Shock [Recovering/Resolving]
  - Neck pain [Recovering/Resolving]
  - Chest pain [Recovering/Resolving]

NARRATIVE: CASE EVENT DATE: 20160729
